FAERS Safety Report 9356918 (Version 3)
Quarter: 2014Q1

REPORT INFORMATION
  Report Type: Report from Study
  Country: GB (occurrence: GB)
  Receive Date: 20130620
  Receipt Date: 20140118
  Transmission Date: 20141002
  Serious: Yes (Hospitalization)
  Sender: FDA-Public Use
  Company Number: GB-ROCHE-1238884

PATIENT
  Age: 80 Year
  Sex: Male

DRUGS (8)
  1. RANIBIZUMAB [Suspect]
     Indication: PRODUCT USED FOR UNKNOWN INDICATION
     Route: 050
     Dates: start: 20111020
  2. RANIBIZUMAB [Suspect]
     Route: 050
     Dates: start: 20130515, end: 20130919
  3. ASPIRIN [Concomitant]
  4. GLIPIZIDE [Concomitant]
  5. METFORMIN [Concomitant]
     Route: 065
  6. NICOTINE [Concomitant]
  7. BALNEUM [Concomitant]
  8. BETAMETHASONE DIPROPIONATE [Concomitant]

REACTIONS (1)
  - Cerebrovascular accident [Recovering/Resolving]
